FAERS Safety Report 20957375 (Version 1)
Quarter: 2022Q2

REPORT INFORMATION
  Report Type: Spontaneous
  Country: CA (occurrence: CA)
  Receive Date: 20220614
  Receipt Date: 20220614
  Transmission Date: 20220720
  Serious: Yes (Hospitalization, Other)
  Sender: FDA-Public Use
  Company Number: CA-009507513-2206CAN003090

PATIENT
  Age: 70 Year
  Sex: Male

DRUGS (14)
  1. KEYTRUDA [Suspect]
     Active Substance: PEMBROLIZUMAB
  2. ASPIRIN [Concomitant]
     Active Substance: ASPIRIN
     Route: 065
  3. CANDESARTAN [Concomitant]
     Active Substance: CANDESARTAN
  4. FOLIC ACID [Concomitant]
     Active Substance: FOLIC ACID
  5. INSULIN NOS [Concomitant]
     Active Substance: INSULIN NOS
  6. MAGNESIUM OXIDE [Concomitant]
     Active Substance: MAGNESIUM OXIDE
  7. METOPROLOL [Concomitant]
     Active Substance: METOPROLOL
     Route: 065
  8. MIDODRINE [Concomitant]
     Active Substance: MIDODRINE
  9. OXAZEPAM [Concomitant]
     Active Substance: OXAZEPAM
  10. PEMETREXED [Concomitant]
     Active Substance: PEMETREXED
  11. PRAVASTATIN SODIUM [Concomitant]
     Active Substance: PRAVASTATIN SODIUM
  12. PREDNISONE [Concomitant]
     Active Substance: PREDNISONE
  13. RABEPRAZOLE [Concomitant]
     Active Substance: RABEPRAZOLE
  14. VITAMIN B12 [Concomitant]
     Active Substance: CYANOCOBALAMIN

REACTIONS (2)
  - Immune-mediated lung disease [Recovering/Resolving]
  - Oxygen therapy [Recovering/Resolving]
